FAERS Safety Report 13454943 (Version 8)
Quarter: 2017Q3

REPORT INFORMATION
  Report Type: Spontaneous
  Country: US (occurrence: US)
  Receive Date: 20170419
  Receipt Date: 20170904
  Transmission Date: 20171127
  Serious: Yes (Congenital Anomaly, Other)
  Sender: FDA-Public Use
  Company Number: PHEH2017US011355

PATIENT
  Sex: Female

DRUGS (3)
  1. ZOFRAN [Suspect]
     Active Substance: ONDANSETRON HYDROCHLORIDE
     Indication: FOETAL EXPOSURE DURING PREGNANCY
     Dosage: MOTHER^S DOSE: 08 MG. PRN
     Route: 064
  2. ZOFRAN [Suspect]
     Active Substance: ONDANSETRON HYDROCHLORIDE
     Indication: FOETAL EXPOSURE DURING PREGNANCY
     Dosage: MOTHER DOSE: 24 MG, PRN
     Route: 064
  3. ZOFRAN ODT [Suspect]
     Active Substance: ONDANSETRON HYDROCHLORIDE
     Indication: FOETAL EXPOSURE DURING PREGNANCY
     Dosage: MOTHER DOSE: 08 MG, BID
     Route: 064

REACTIONS (32)
  - Insomnia [Unknown]
  - Otitis media [Unknown]
  - Rhinitis allergic [Unknown]
  - Pain in extremity [Unknown]
  - Viral infection [Unknown]
  - Contusion [Unknown]
  - Rash [Unknown]
  - Coccidioidomycosis [Unknown]
  - Foetal exposure during pregnancy [Unknown]
  - Adenoidal hypertrophy [Unknown]
  - Ear infection [Unknown]
  - Lymphoid tissue hyperplasia [Unknown]
  - Wheezing [Unknown]
  - Pharyngitis [Unknown]
  - Ventricular septal defect [Recovered/Resolved]
  - Pneumonia [Unknown]
  - Eustachian tube dysfunction [Unknown]
  - Injury [Unknown]
  - Cardiac murmur [Unknown]
  - Respiratory tract infection [Unknown]
  - Nasal congestion [Unknown]
  - Excessive cerumen production [Unknown]
  - Decreased appetite [Unknown]
  - Asthenia [Unknown]
  - Craniocerebral injury [Unknown]
  - Dysuria [Unknown]
  - Cough [Unknown]
  - Post concussion syndrome [Unknown]
  - Nasopharyngitis [Unknown]
  - Rhinorrhoea [Unknown]
  - Ear pain [Unknown]
  - Pyrexia [Unknown]
